FAERS Safety Report 24995200 (Version 1)
Quarter: 2025Q1

REPORT INFORMATION
  Report Type: Spontaneous
  Country: CA (occurrence: CA)
  Receive Date: 20250221
  Receipt Date: 20250221
  Transmission Date: 20250409
  Serious: Yes (Other)
  Sender: PFIZER
  Company Number: CA-PFIZER INC-202400023704

PATIENT
  Age: 65 Year
  Sex: Female

DRUGS (2)
  1. ABRILADA [Suspect]
     Active Substance: ADALIMUMAB-AFZB
     Indication: Crohn^s disease
     Route: 058
     Dates: start: 20240123
  2. ENTOCORT [Concomitant]
     Active Substance: BUDESONIDE

REACTIONS (9)
  - Ileostomy [Unknown]
  - Injection site discomfort [Recovered/Resolved]
  - Injection site pain [Recovered/Resolved]
  - Condition aggravated [Unknown]
  - Arthralgia [Unknown]
  - Arthritis [Unknown]
  - Osteoarthritis [Unknown]
  - Tendonitis [Unknown]
  - Bursitis [Unknown]

NARRATIVE: CASE EVENT DATE: 20240123
